FAERS Safety Report 9639213 (Version 5)
Quarter: 2014Q2

REPORT INFORMATION
  Report Type: Report from Study
  Country: CA (occurrence: CA)
  Receive Date: 20131022
  Receipt Date: 20140613
  Transmission Date: 20141212
  Serious: Yes (Other)
  Sender: FDA-Public Use
  Company Number: CA-ROCHE-1177730

PATIENT
  Age: 44 Year
  Sex: Female
  Weight: 57 kg

DRUGS (10)
  1. RITUXAN [Suspect]
     Indication: RHEUMATOID ARTHRITIS
     Dosage: LAST DOSE:  14/FEB/2012 AND 25/JAN/2013.
     Route: 042
     Dates: start: 20080527
  2. METHOTREXATE [Concomitant]
     Route: 048
  3. FLURBIPROFEN [Concomitant]
  4. FOLIC ACID [Concomitant]
  5. LOSEC [Concomitant]
  6. DIPHENHYDRAMINE HCL [Concomitant]
     Indication: PREMEDICATION
     Route: 048
     Dates: start: 20091110
  7. ACETAMINOPHEN [Concomitant]
     Route: 048
     Dates: start: 20091110
  8. GRAVOL [Concomitant]
     Route: 048
     Dates: start: 20091110
  9. GRAVOL [Concomitant]
     Route: 048
     Dates: start: 20080527
  10. METHYLPREDNISOLONE [Concomitant]
     Route: 042
     Dates: start: 20091110

REACTIONS (11)
  - Joint injury [Unknown]
  - Blood cholesterol increased [Not Recovered/Not Resolved]
  - Finger deformity [Unknown]
  - Anxiety disorder [Not Recovered/Not Resolved]
  - Pruritus [Recovered/Resolved]
  - Infusion related reaction [Recovered/Resolved]
  - Rheumatoid arthritis [Not Recovered/Not Resolved]
  - Stress [Not Recovered/Not Resolved]
  - Musculoskeletal stiffness [Not Recovered/Not Resolved]
  - Escherichia infection [Recovered/Resolved]
  - Hot flush [Not Recovered/Not Resolved]
